FAERS Safety Report 24097736 (Version 1)
Quarter: 2024Q3

REPORT INFORMATION
  Report Type: Other
  Country: NL (occurrence: GR)
  Receive Date: 20240716
  Receipt Date: 20240716
  Transmission Date: 20241017
  Serious: Yes (Other)
  Sender: KOWA PHARM
  Company Number: None

PATIENT

DRUGS (5)
  1. PITAVASTATIN [Suspect]
     Active Substance: PITAVASTATIN
     Indication: Cerebrovascular accident
     Dosage: 1 DF, QD
     Dates: start: 20240312, end: 20240618
  2. EZETIMIBE [Suspect]
     Active Substance: EZETIMIBE
     Indication: Cerebrovascular accident
     Dosage: 1 DF, QD
     Dates: start: 20240312, end: 20240618
  3. ROSUVASTATIN [Suspect]
     Active Substance: ROSUVASTATIN
     Indication: Cerebrovascular accident
     Dosage: 1 DF, QD
     Dates: start: 20240312, end: 20240618
  4. ATORVASTATIN [Suspect]
     Active Substance: ATORVASTATIN
     Indication: Cerebrovascular accident
     Dosage: 1 DF, QD
     Dates: start: 20240312, end: 20240618
  5. SIMVASTATIN [Suspect]
     Active Substance: SIMVASTATIN
     Indication: Cerebrovascular accident
     Dosage: 1 DF, QD
     Dates: start: 20240312, end: 20240618

REACTIONS (3)
  - Face oedema [Recovering/Resolving]
  - Myalgia [Recovering/Resolving]
  - Off label use [Unknown]

NARRATIVE: CASE EVENT DATE: 20240429
